FAERS Safety Report 9298726 (Version 1)
Quarter: 2013Q2

REPORT INFORMATION
  Report Type: Spontaneous
  Country: US (occurrence: US)
  Receive Date: 20130520
  Receipt Date: 20130520
  Transmission Date: 20140414
  Serious: Yes (Hospitalization)
  Sender: FDA-Public Use
  Company Number: US-GLAXOSMITHKLINE-A0791254A

PATIENT
  Age: 58 Year
  Sex: Female
  Weight: 90.8 kg

DRUGS (1)
  1. AVANDIA [Suspect]
     Indication: DIABETES MELLITUS
     Dosage: 4U TWICE PER DAY
     Route: 065
     Dates: start: 200401, end: 200704

REACTIONS (2)
  - Myocardial infarction [Unknown]
  - Chest pain [Unknown]
